FAERS Safety Report 4319701-9 (Version None)
Quarter: 2004Q1

REPORT INFORMATION
  Report Type: 
  Country: None (occurrence: None)
  Receive Date: 20040319
  Receipt Date: 20040316
  Transmission Date: 20041129
  Serious: Yes (Hospitalization)
  Sender: FDA-Public Use
  Company Number: FR-BRISTOL-MYERS SQUIBB COMPANY-12535183

PATIENT
  Age: 56 Year
  Sex: Male

DRUGS (3)
  1. SINEMET [Suspect]
     Dosage: REINTRODUCED AT A SMALLER DOSAGE ON AN UNSPECIFIED DATE
     Route: 048
     Dates: end: 20040218
  2. CELANCE [Suspect]
     Route: 048
     Dates: end: 20040218
  3. COMTAN [Suspect]
     Route: 048
     Dates: end: 20040218

REACTIONS (2)
  - DELIRIUM [None]
  - PARANOIA [None]
